FAERS Safety Report 6925924-2 (Version None)
Quarter: 2010Q3

REPORT INFORMATION
  Report Type: 
  Country: None (occurrence: None)
  Receive Date: 20100816
  Receipt Date: 20100810
  Transmission Date: 20110219
  Serious: Yes (Death, Hospitalization, Other)
  Sender: FDA-Public Use
  Company Number: PHHY2010NL40294

PATIENT
  Age: 57 Year
  Sex: Male

DRUGS (2)
  1. CLOZAPINE [Suspect]
     Dosage: UNK
  2. THIORIDAZINE HCL [Concomitant]

REACTIONS (18)
  - ARTERIOSCLEROSIS CORONARY ARTERY [None]
  - BACTERIAL INFECTION [None]
  - BLOOD CREATINE PHOSPHOKINASE INCREASED [None]
  - BLOOD POTASSIUM DECREASED [None]
  - CARDIAC FAILURE [None]
  - CARDIAC MURMUR [None]
  - DEATH [None]
  - DYSPNOEA [None]
  - EOSINOPHILIA [None]
  - FATIGUE [None]
  - HAEMOGLOBIN DECREASED [None]
  - HEPATITIS [None]
  - HYPERTENSION [None]
  - MYOCARDITIS [None]
  - NEUROLEPTIC MALIGNANT SYNDROME [None]
  - PYREXIA [None]
  - TACHYCARDIA [None]
  - WHITE BLOOD CELL COUNT INCREASED [None]
